FAERS Safety Report 21188286 (Version 1)
Quarter: 2022Q3

REPORT INFORMATION
  Report Type: Spontaneous
  Country: FR (occurrence: FR)
  Receive Date: 20220809
  Receipt Date: 20220809
  Transmission Date: 20221026
  Serious: Yes (Hospitalization, Other)
  Sender: FDA-Public Use
  Company Number: FR-MLMSERVICE-20220607-3586454-1

PATIENT
  Age: 47 Year
  Sex: Male

DRUGS (5)
  1. KETOPROFEN [Suspect]
     Active Substance: KETOPROFEN
     Indication: Gout
     Dosage: UNK
     Route: 065
     Dates: start: 202106, end: 2021
  2. ALLOPURINOL [Suspect]
     Active Substance: ALLOPURINOL
     Indication: Gout
     Dosage: UNK
     Route: 065
     Dates: start: 202106, end: 202107
  3. OMEPRAZOLE [Concomitant]
     Active Substance: OMEPRAZOLE
     Indication: Gout
     Dosage: UNK
     Route: 065
     Dates: start: 202106
  4. COLCHICINE [Concomitant]
     Active Substance: COLCHICINE
     Indication: Gout
     Dosage: UNK
     Route: 065
     Dates: start: 202106
  5. ACETAMINOPHEN [Concomitant]
     Active Substance: ACETAMINOPHEN
     Indication: Gout
     Dosage: UNK
     Route: 065
     Dates: start: 202106

REACTIONS (4)
  - Acute kidney injury [Recovering/Resolving]
  - Vasculitis necrotising [Recovering/Resolving]
  - Renal vasculitis [Recovering/Resolving]
  - Hypersensitivity vasculitis [Recovered/Resolved]

NARRATIVE: CASE EVENT DATE: 20210101
